FAERS Safety Report 7483692-2 (Version None)
Quarter: 2011Q2

REPORT INFORMATION
  Report Type: 
  Country: None (occurrence: None)
  Receive Date: 20110517
  Receipt Date: 20110511
  Transmission Date: 20111010
  Serious: Yes (Other)
  Sender: FDA-Public Use
  Company Number: FR-AMGEN-FRASP2011024233

PATIENT
  Age: 71 Year
  Sex: Male

DRUGS (4)
  1. NEULASTA [Suspect]
     Indication: CHEMOTHERAPY
     Dosage: 6 MG, UNK
     Route: 058
     Dates: start: 20110216, end: 20110415
  2. RITUXIMAB [Concomitant]
  3. DEXAMETHASONE [Concomitant]
  4. ENDOXAN                            /00021101/ [Concomitant]

REACTIONS (3)
  - THROAT TIGHTNESS [None]
  - HYPERHIDROSIS [None]
  - HYPERSENSITIVITY [None]
